FAERS Safety Report 19166236 (Version 4)
Quarter: 2021Q2

REPORT INFORMATION
  Report Type: Spontaneous
  Country: BR (occurrence: BR)
  Receive Date: 20210422
  Receipt Date: 20210514
  Transmission Date: 20210717
  Serious: Yes (Hospitalization)
  Sender: FDA-Public Use
  Company Number: BR-JNJFOC-20210426025

PATIENT
  Age: 42 Year
  Sex: Male

DRUGS (7)
  1. ETIRA [Concomitant]
     Indication: SEIZURE
     Dosage: 500 MG, BID
     Route: 048
     Dates: start: 20200430
  2. XARELTO [Suspect]
     Active Substance: RIVAROXABAN
     Indication: CEREBROVASCULAR ACCIDENT PROPHYLAXIS
     Dosage: 20 MG, QD
     Route: 048
     Dates: start: 20190201, end: 20210401
  3. ATORVASTATIN [Concomitant]
     Active Substance: ATORVASTATIN
     Indication: BLOOD CHOLESTEROL ABNORMAL
  4. VENZER [Concomitant]
     Indication: ISCHAEMIC STROKE
     Dosage: 16 MG
     Dates: start: 2009
  5. ATORVASTATIN [Concomitant]
     Active Substance: ATORVASTATIN
     Indication: CEREBROVASCULAR ACCIDENT PROPHYLAXIS
     Dosage: 40 MG
     Dates: start: 201812
  6. CONCOR [Concomitant]
     Active Substance: BISOPROLOL FUMARATE
     Indication: ISCHAEMIC STROKE
     Dosage: 5 MG
     Dates: start: 201902
  7. VENZER [Concomitant]
     Indication: HYPERTENSION

REACTIONS (7)
  - Product lot number issue [Unknown]
  - Drug ineffective [Unknown]
  - Speech disorder [Unknown]
  - Dysarthria [Recovering/Resolving]
  - Facial asymmetry [Unknown]
  - Ischaemic stroke [Recovered/Resolved with Sequelae]
  - Memory impairment [Recovering/Resolving]

NARRATIVE: CASE EVENT DATE: 20210401
